FAERS Safety Report 5269227-3 (Version None)
Quarter: 2007Q1

REPORT INFORMATION
  Report Type: 
  Country: None (occurrence: None)
  Receive Date: 20070319
  Receipt Date: 20070309
  Transmission Date: 20070707
  Serious: Yes (Disabling)
  Sender: FDA-Public Use
  Company Number: NL-PFIZER INC-2007002611

PATIENT
  Sex: Female
  Weight: 60 kg

DRUGS (3)
  1. DETRUSITOL SR [Suspect]
     Indication: MICTURITION URGENCY
     Route: 048
  2. STEDIRIL [Concomitant]
     Indication: CONTRACEPTION
     Route: 048
  3. FERROGRADUMET [Concomitant]
     Route: 048
     Dates: start: 20061114, end: 20061214

REACTIONS (2)
  - ARTHRALGIA [None]
  - MYALGIA [None]
